FAERS Safety Report 10469269 (Version 1)
Quarter: 2014Q3

REPORT INFORMATION
  Report Type: Spontaneous
  Country: CA (occurrence: None)
  Receive Date: 20140919
  Receipt Date: 20140919
  Transmission Date: 20150326
  Serious: Yes (Other)
  Sender: FDA-Public Use
  Company Number: COL_17852_2014

PATIENT
  Sex: Female

DRUGS (1)
  1. COLGATE TOTAL ADVANCED CLEAN [Suspect]
     Active Substance: SODIUM FLUORIDE\TRICLOSAN
     Indication: PRODUCT USED FOR UNKNOWN INDICATION
     Dosage: (NI/NI/ ORAL)
     Route: 048
     Dates: end: 20140911

REACTIONS (1)
  - Breast cancer [None]
